FAERS Safety Report 19860955 (Version 1)
Quarter: 2021Q3

REPORT INFORMATION
  Report Type: Spontaneous
  Country: US (occurrence: US)
  Receive Date: 20210921
  Receipt Date: 20210921
  Transmission Date: 20211014
  Serious: Yes (Other)
  Sender: FDA-Public Use
  Company Number: US-BEH-2021136076

PATIENT
  Sex: Male

DRUGS (2)
  1. IDELVION [Suspect]
     Active Substance: COAGULATION FACTOR IX RECOMBINANT HUMAN
     Indication: FACTOR IX DEFICIENCY
     Dosage: 6500 INTERNATIONAL UNIT, QW AND AS NEEDED
     Route: 042
     Dates: start: 20210817
  2. IDELVION [Suspect]
     Active Substance: COAGULATION FACTOR IX RECOMBINANT HUMAN
     Indication: FACTOR IX DEFICIENCY
     Dosage: 6500 INTERNATIONAL UNIT, QW AND AS NEEDED
     Route: 042
     Dates: start: 20210817

REACTIONS (1)
  - Haemorrhage [Recovered/Resolved]
